FAERS Safety Report 9422999 (Version 13)
Quarter: 2016Q3

REPORT INFORMATION
  Report Type: Spontaneous
  Country: US (occurrence: US)
  Receive Date: 20130726
  Receipt Date: 20160909
  Transmission Date: 20161109
  Serious: Yes (Other)
  Sender: FDA-Public Use
  Company Number: US-GLAXOSMITHKLINE-A0857290A

PATIENT

DRUGS (12)
  1. KEPPRA [Suspect]
     Active Substance: LEVETIRACETAM
     Indication: EPILEPSY
     Dosage: UNK
     Dates: start: 2004
  2. LAMICTAL [Suspect]
     Active Substance: LAMOTRIGINE
     Dosage: 100 MG, UNK
     Dates: start: 201604
  3. PAXIL [Suspect]
     Active Substance: PAROXETINE HYDROCHLORIDE
     Indication: PRODUCT USED FOR UNKNOWN INDICATION
  4. MONOSODIUM GLUTAMATE [Suspect]
     Active Substance: MONOSODIUM GLUTAMATE
     Indication: PRODUCT USED FOR UNKNOWN INDICATION
     Dosage: UNK, U
  5. LAMICTAL [Suspect]
     Active Substance: LAMOTRIGINE
     Indication: SEIZURE
     Dosage: 150 MG, BID
     Route: 048
     Dates: start: 2000
  6. LAMICTAL [Suspect]
     Active Substance: LAMOTRIGINE
     Dosage: 50 MG, BID
     Route: 048
     Dates: start: 201603
  7. ASPARTAME [Suspect]
     Active Substance: ASPARTAME
     Indication: PRODUCT USED FOR UNKNOWN INDICATION
  8. MELATONIN [Suspect]
     Active Substance: MELATONIN
     Indication: PRODUCT USED FOR UNKNOWN INDICATION
  9. LAMOTRIGINE. [Suspect]
     Active Substance: LAMOTRIGINE
     Indication: SEIZURE
     Dosage: 50 MG, BID
     Route: 048
     Dates: start: 201001, end: 201002
  10. LAMOTRIGINE. [Suspect]
     Active Substance: LAMOTRIGINE
     Indication: EPILEPSY
  11. LAMICTAL [Suspect]
     Active Substance: LAMOTRIGINE
     Indication: EPILEPSY
     Dosage: 350 MG, QD
     Dates: end: 2012
  12. LAMICTAL [Suspect]
     Active Substance: LAMOTRIGINE
     Dosage: 25 MG, U
     Dates: start: 201603

REACTIONS (17)
  - Anuria [Not Recovered/Not Resolved]
  - Generalised tonic-clonic seizure [Unknown]
  - Gastric disorder [Unknown]
  - Concussion [Unknown]
  - Suicidal ideation [Unknown]
  - Pain in extremity [Unknown]
  - Seizure [Unknown]
  - Feeling abnormal [Unknown]
  - Skin texture abnormal [Unknown]
  - Drug ineffective [Unknown]
  - Insomnia [Not Recovered/Not Resolved]
  - Sleep disorder [Recovered/Resolved]
  - Sensory disturbance [Unknown]
  - Constipation [Not Recovered/Not Resolved]
  - Flight of ideas [Unknown]
  - Amnesia [Unknown]
  - Poor quality sleep [Recovered/Resolved]

NARRATIVE: CASE EVENT DATE: 2000
